FAERS Safety Report 4263722-1 (Version None)
Quarter: 2004Q1

REPORT INFORMATION
  Report Type: 
  Country: None (occurrence: None)
  Receive Date: 20040102
  Receipt Date: 20031217
  Transmission Date: 20041129
  Serious: No
  Sender: FDA-Public Use
  Company Number: 2003GB03297

PATIENT
  Age: 47 Year
  Sex: Male
  Weight: 120 kg

DRUGS (1)
  1. SEROQUEL [Suspect]
     Indication: SCHIZOPHRENIA
     Dosage: 750 MG DAILY PO
     Route: 048
     Dates: start: 20031113, end: 20031210

REACTIONS (2)
  - ANGIONEUROTIC OEDEMA [None]
  - RASH ERYTHEMATOUS [None]
